FAERS Safety Report 12712993 (Version 1)
Quarter: 2016Q3

REPORT INFORMATION
  Report Type: Report from Study
  Country: US (occurrence: US)
  Receive Date: 20160902
  Receipt Date: 20160902
  Transmission Date: 20161109
  Serious: Yes (Other)
  Sender: FDA-Public Use
  Company Number: US-ABBVIE-16P-163-1716644-00

PATIENT
  Sex: Female

DRUGS (17)
  1. NATURE-THROID [Concomitant]
     Active Substance: THYROID, PORCINE
     Indication: PRODUCT USED FOR UNKNOWN INDICATION
  2. CYMBALTA [Concomitant]
     Active Substance: DULOXETINE HYDROCHLORIDE
     Indication: PAIN
     Route: 048
  3. HYDROCHLOROTHIAZIDE. [Concomitant]
     Active Substance: HYDROCHLOROTHIAZIDE
     Indication: PRODUCT USED FOR UNKNOWN INDICATION
     Route: 048
  4. LEVEMIR [Concomitant]
     Active Substance: INSULIN DETEMIR
     Indication: PRODUCT USED FOR UNKNOWN INDICATION
     Dosage: QHS
     Route: 058
  5. CYMBALTA [Concomitant]
     Active Substance: DULOXETINE HYDROCHLORIDE
     Indication: AFFECTIVE DISORDER
  6. METFORMIN HCL [Concomitant]
     Active Substance: METFORMIN HYDROCHLORIDE
     Indication: PRODUCT USED FOR UNKNOWN INDICATION
     Route: 048
  7. GABAPENTIN. [Concomitant]
     Active Substance: GABAPENTIN
     Indication: PAIN
  8. PROBIOTIC-PREBIOTIC [Concomitant]
     Indication: PRODUCT USED FOR UNKNOWN INDICATION
     Dosage: 1-250 BILLION-MG
  9. EMLA [Concomitant]
     Active Substance: LIDOCAINE\PRILOCAINE
     Indication: PAIN
     Dosage: QHS
     Route: 061
  10. RAMIPRIL. [Concomitant]
     Active Substance: RAMIPRIL
     Indication: PRODUCT USED FOR UNKNOWN INDICATION
     Route: 048
  11. VENTOLIN HFA [Concomitant]
     Active Substance: ALBUTEROL SULFATE
     Indication: CHEST DISCOMFORT
  12. RENOVO LIDO5 [Concomitant]
     Active Substance: CAPSAICIN\LIDOCAINE\MENTHOL
     Indication: PAIN
  13. VENTOLIN HFA [Concomitant]
     Active Substance: ALBUTEROL SULFATE
     Indication: WHEEZING
     Dosage: 1-2 INHALATIONS 4-6 HOURS
     Route: 055
  14. GLIPIZIDE. [Concomitant]
     Active Substance: GLIPIZIDE
     Indication: PRODUCT USED FOR UNKNOWN INDICATION
     Dosage: 1 TAB BEFORE BREAKFAST AND DINNER
     Route: 048
  15. SYNTHROID [Suspect]
     Active Substance: LEVOTHYROXINE SODIUM
     Indication: PRODUCT USED FOR UNKNOWN INDICATION
     Route: 048
  16. TRIAMCINOLONE ACETONIDE. [Concomitant]
     Active Substance: TRIAMCINOLONE ACETONIDE
     Indication: RASH
     Dosage: PRN
  17. PATANOL [Concomitant]
     Active Substance: OLOPATADINE HYDROCHLORIDE
     Indication: PRODUCT USED FOR UNKNOWN INDICATION
     Dosage: EACH EYE PRN

REACTIONS (23)
  - Hyponatraemia [Unknown]
  - Neuropathy peripheral [Unknown]
  - Rhinitis allergic [Unknown]
  - Dermatitis [Unknown]
  - Bronchitis [Unknown]
  - Herpes zoster [Unknown]
  - Hypothyroidism [Unknown]
  - Vitamin B12 deficiency [Unknown]
  - Leukocytosis [Unknown]
  - Anaemia [Unknown]
  - Single functional kidney [Unknown]
  - Pain in extremity [Unknown]
  - Dysfunctional uterine bleeding [Unknown]
  - Anxiety [Unknown]
  - Butterfly rash [Unknown]
  - Menopausal symptoms [Unknown]
  - Arthralgia [Unknown]
  - Type 2 diabetes mellitus [Unknown]
  - Chronic sinusitis [Unknown]
  - Axillary mass [Unknown]
  - Tendon rupture [Unknown]
  - Tooth abscess [Unknown]
  - Panic disorder [Unknown]
